FAERS Safety Report 10594144 (Version 2)
Quarter: 2014Q4

REPORT INFORMATION
  Report Type: Spontaneous
  Country: NO (occurrence: NO)
  Receive Date: 20141119
  Receipt Date: 20141218
  Transmission Date: 20150529
  Serious: Yes (Other)
  Sender: FDA-Public Use
  Company Number: NO-JNJFOC-20141106700

PATIENT
  Age: 1 Month
  Sex: Female

DRUGS (1)
  1. TOPIRAMATE. [Suspect]
     Active Substance: TOPIRAMATE
     Indication: EPILEPSY
     Dosage: MOTHER^S DOSING
     Route: 063

REACTIONS (3)
  - Exposure during breast feeding [Recovered/Resolved]
  - Diarrhoea [Recovered/Resolved]
  - Foetal exposure during pregnancy [Recovered/Resolved]
